FAERS Safety Report 12737083 (Version 1)
Quarter: 2016Q3

REPORT INFORMATION
  Report Type: Report from Study
  Country: FR (occurrence: FR)
  Receive Date: 20160913
  Receipt Date: 20160913
  Transmission Date: 20161109
  Serious: Yes (Death, Hospitalization)
  Sender: FDA-Public Use
  Company Number: FR-CELGENEUS-FRA-2016073798

PATIENT
  Age: 60 Year
  Sex: Female

DRUGS (17)
  1. ABRAXANE [Suspect]
     Active Substance: PACLITAXEL
     Indication: NON-SMALL CELL LUNG CANCER
     Dosage: 137.25 MG
     Route: 041
     Dates: start: 20160425, end: 20160627
  2. ATEZOLIZUMAB [Suspect]
     Active Substance: ATEZOLIZUMAB
     Indication: NON-SMALL CELL LUNG CANCER
     Route: 041
     Dates: start: 20160425, end: 20160613
  3. CARBOPLATIN. [Suspect]
     Active Substance: CARBOPLATIN
     Indication: NON-SMALL CELL LUNG CANCER
     Route: 041
     Dates: start: 20160425, end: 20160613
  4. INIPOMP [Concomitant]
     Active Substance: PANTOPRAZOLE SODIUM
     Indication: NAUSEA
     Route: 065
     Dates: start: 20160510
  5. ZOMETA [Concomitant]
     Active Substance: ZOLEDRONIC ACID
     Indication: HYPERCALCAEMIA
     Route: 065
     Dates: start: 20160524, end: 20160524
  6. PRIMPERAN [Concomitant]
     Active Substance: METOCLOPRAMIDE HYDROCHLORIDE
     Indication: PROPHYLAXIS OF NAUSEA AND VOMITING
     Route: 065
     Dates: start: 201607
  7. SERUM PHYSIOLOGICAL [Concomitant]
     Active Substance: SODIUM CHLORIDE
     Indication: HYPERCALCAEMIA
     Route: 065
     Dates: start: 20160506
  8. TIORFAN [Concomitant]
     Active Substance: RACECADOTRIL
     Indication: PRODUCT USED FOR UNKNOWN INDICATION
     Route: 065
  9. ZOPHREN [Concomitant]
     Active Substance: ONDANSETRON
     Indication: PROPHYLAXIS OF NAUSEA AND VOMITING
     Route: 065
     Dates: start: 201607
  10. OXYCONTIN [Concomitant]
     Active Substance: OXYCODONE HYDROCHLORIDE
     Indication: PAIN
     Dosage: 538.7 MILLIGRAM
     Route: 065
     Dates: start: 201607
  11. FERINJECT [Concomitant]
     Active Substance: FERRIC CARBOXYMALTOSE
     Indication: PROPHYLAXIS
     Route: 065
     Dates: start: 20160531, end: 20160531
  12. BLOOD [Concomitant]
     Active Substance: WHOLE BLOOD
     Indication: ANAEMIA
     Route: 065
     Dates: start: 20160711, end: 20160712
  13. APREPITANT. [Concomitant]
     Active Substance: APREPITANT
     Indication: PROPHYLAXIS OF NAUSEA AND VOMITING
     Route: 065
     Dates: start: 20160425
  14. OXYNORM [Concomitant]
     Active Substance: OXYCODONE HYDROCHLORIDE
     Indication: PAIN
     Route: 065
     Dates: start: 201607
  15. ACTISKENAN [Concomitant]
     Active Substance: MORPHINE SULFATE
     Indication: PAIN
     Route: 065
     Dates: start: 201604, end: 201607
  16. TRAMADOL. [Concomitant]
     Active Substance: TRAMADOL
     Indication: MUSCULOSKELETAL PAIN
     Dosage: 1200 MILLIGRAM
     Route: 065
  17. SKENAN [Concomitant]
     Active Substance: MORPHINE SULFATE
     Indication: MUSCULOSKELETAL PAIN
     Route: 065
     Dates: start: 201604, end: 201607

REACTIONS (1)
  - Asthenia [Fatal]

NARRATIVE: CASE EVENT DATE: 20160502
